FAERS Safety Report 18306921 (Version 1)
Quarter: 2020Q3

REPORT INFORMATION
  Report Type: Spontaneous
  Country: FR (occurrence: FR)
  Receive Date: 20200924
  Receipt Date: 20200924
  Transmission Date: 20201103
  Serious: Yes (Other)
  Sender: FDA-Public Use
  Company Number: FR-SHILPA MEDICARE LIMITED-SML-FR-2020-00298

PATIENT
  Age: 55 Year
  Sex: Female

DRUGS (4)
  1. VINCRISTINE [Concomitant]
     Active Substance: VINCRISTINE
     Indication: B PRECURSOR TYPE ACUTE LEUKAEMIA
     Route: 037
  2. IMATINIB, UNKNOWN [Suspect]
     Active Substance: IMATINIB
     Indication: B PRECURSOR TYPE ACUTE LEUKAEMIA
     Dosage: 300 MILLIGRAM, BID
     Route: 065
  3. NILOTINIB [Suspect]
     Active Substance: NILOTINIB
     Indication: B PRECURSOR TYPE ACUTE LEUKAEMIA
     Route: 037
  4. DEXAMETHASONE. [Concomitant]
     Active Substance: DEXAMETHASONE
     Indication: B PRECURSOR TYPE ACUTE LEUKAEMIA
     Dosage: INFUSION
     Route: 037

REACTIONS (1)
  - Drug resistance [Unknown]
